FAERS Safety Report 5613547-7 (Version None)
Quarter: 2008Q1

REPORT INFORMATION
  Report Type: 
  Country: None (occurrence: None)
  Receive Date: 20080205
  Receipt Date: 20080128
  Transmission Date: 20080703
  Serious: Yes (Other)
  Sender: FDA-Public Use
  Company Number: JP-ELI_LILLY_AND_COMPANY-JP200801001460

PATIENT
  Sex: Female
  Weight: 40 kg

DRUGS (6)
  1. EVISTA [Suspect]
     Indication: OSTEOPOROSIS
     Dosage: 60 MG, DAILY (1/D)
     Route: 048
     Dates: start: 20070714, end: 20070806
  2. EVISTA [Suspect]
     Dosage: 60 MG, DAILY (1/D)
     Route: 048
     Dates: start: 20080104, end: 20080105
  3. EPADEL [Concomitant]
     Indication: HYPERCHOLESTEROLAEMIA
     Dosage: 2 D/F, UNK
     Dates: start: 20070714, end: 20070806
  4. JUVELA NICOTINATE [Concomitant]
     Indication: HYPERCHOLESTEROLAEMIA
     Dosage: 1 D/F, 2/D
     Dates: start: 20070714, end: 20070806
  5. LIPITOR [Concomitant]
     Indication: HYPERCHOLESTEROLAEMIA
     Dosage: 5 MG, EACH EVENING
     Route: 048
     Dates: start: 20070714, end: 20070806
  6. ROCALTROL [Concomitant]
     Indication: OSTEOPOROSIS
     Dosage: 1 D/F, UNK
     Dates: start: 20080104, end: 20080105

REACTIONS (1)
  - DRUG ERUPTION [None]
